FAERS Safety Report 6020488-2 (Version None)
Quarter: 2008Q4

REPORT INFORMATION
  Report Type: 
  Country: None (occurrence: None)
  Receive Date: 20081226
  Receipt Date: 20081217
  Transmission Date: 20090506
  Serious: Yes (Hospitalization)
  Sender: FDA-Public Use
  Company Number: DE-BAYER-200833153GPV

PATIENT
  Age: 64 Year
  Sex: Male
  Weight: 67 kg

DRUGS (2)
  1. SORAFENIB [Suspect]
     Indication: HEPATIC NEOPLASM MALIGNANT
     Dosage: TOTAL DAILY DOSE: 400 MG
     Route: 048
     Dates: start: 20080202, end: 20081125
  2. TRANSARTERIAL CHEMOEMBOLIZATION (TACE) [Suspect]
     Indication: HEPATIC NEOPLASM MALIGNANT
     Route: 065

REACTIONS (2)
  - LIVER ABSCESS [None]
  - SEPSIS [None]
